FAERS Safety Report 8169126-3 (Version None)
Quarter: 2012Q1

REPORT INFORMATION
  Report Type: 
  Country: None (occurrence: None)
  Receive Date: 20120227
  Receipt Date: 20120217
  Transmission Date: 20120608
  Serious: Yes (Disabling, Other)
  Sender: FDA-Public Use
  Company Number: US-ABBOTT-12P-163-0906214-00

PATIENT
  Age: 48 Year
  Sex: Female
  Weight: 89.892 kg

DRUGS (22)
  1. LOMOTIL [Suspect]
     Indication: CROHN'S DISEASE
     Route: 048
  2. NITROSTAT [Suspect]
     Indication: CHEST PAIN
  3. ZANTAC [Suspect]
     Indication: GASTROOESOPHAGEAL REFLUX DISEASE
  4. ATIVAN [Suspect]
     Indication: NERVOUSNESS
     Route: 048
  5. METHOCARBAMOL [Suspect]
     Indication: NEUROPATHY PERIPHERAL
  6. NORVASC [Suspect]
     Indication: CARDIAC DISORDER
     Route: 048
  7. POTASSIUM CHLORIDE [Suspect]
     Indication: BLOOD POTASSIUM ABNORMAL
  8. ATENOLOL [Suspect]
     Indication: HYPERTENSION
     Route: 048
  9. HUMULIN R [Suspect]
     Indication: DIABETES MELLITUS
  10. LANTUS [Suspect]
     Indication: DIABETES MELLITUS
     Dosage: 80 UNITS IN MORNING, 90 UNITS AT NIGHT
  11. GENERLAC [Suspect]
     Indication: CROHN'S DISEASE
  12. FUROSEMIDE [Suspect]
     Indication: DIURETIC THERAPY
     Route: 048
  13. DEPAKOTE [Suspect]
     Indication: CONVULSION
     Route: 048
  14. ISOSORBIDE MONONITRATE [Suspect]
     Indication: CARDIAC DISORDER
  15. DILANTIN [Suspect]
     Indication: CONVULSION
     Route: 048
  16. TYLENOL W/ CODEINE NO. 3 [Suspect]
     Indication: MIGRAINE
  17. REMERON [Suspect]
     Indication: INSOMNIA
     Route: 048
  18. UNSPECIFIED MEDICATION [Suspect]
     Indication: DEPRESSION
  19. METHOCARBAMOL [Suspect]
     Indication: MUSCLE SPASMS
     Route: 048
  20. SIMVASTATIN [Suspect]
     Indication: BLOOD CHOLESTEROL INCREASED
     Route: 048
  21. NORVASC [Suspect]
     Indication: LUNG DISORDER
  22. ASPIRIN [Suspect]
     Indication: CHEST PAIN

REACTIONS (4)
  - BEDRIDDEN [None]
  - AMNESIA [None]
  - EMPHYSEMA [None]
  - CHRONIC OBSTRUCTIVE PULMONARY DISEASE [None]
